FAERS Safety Report 13272885 (Version 1)
Quarter: 2017Q1

REPORT INFORMATION
  Report Type: Spontaneous
  Country: US (occurrence: US)
  Receive Date: 20170227
  Receipt Date: 20170227
  Transmission Date: 20170428
  Serious: Yes (Disabling)
  Sender: FDA-Public Use
  Company Number: None

PATIENT
  Age: 72 Year
  Sex: Female
  Weight: 77.18 kg

DRUGS (8)
  1. BIOTIN [Concomitant]
     Active Substance: BIOTIN
  2. MAGNESIUM [Concomitant]
     Active Substance: MAGNESIUM
  3. LIVALO [Suspect]
     Active Substance: PITAVASTATIN CALCIUM
     Indication: BLOOD CHOLESTEROL INCREASED
     Dosage: 2 MG 1 PILL EVERY OTHER DAY, MOUTH
     Route: 048
  4. BIOSIL [Concomitant]
  5. CALCIUM WITH VITAMIN D [Concomitant]
     Active Substance: CALCIUM\VITAMIN D
  6. VITAMIN C [Concomitant]
     Active Substance: ASCORBIC ACID
  7. UBIGUINOL [Concomitant]
  8. PROBIOTIC [Concomitant]
     Active Substance: PROBIOTICS NOS

REACTIONS (5)
  - Muscle atrophy [None]
  - Back pain [None]
  - Pain [None]
  - Fatigue [None]
  - Muscle injury [None]
